FAERS Safety Report 7551207-6 (Version None)
Quarter: 2011Q2

REPORT INFORMATION
  Report Type: 
  Country: None (occurrence: None)
  Receive Date: 20110616
  Receipt Date: 20110603
  Transmission Date: 20111010
  Serious: Yes (Other)
  Sender: FDA-Public Use
  Company Number: PHHY2011US24793

PATIENT

DRUGS (6)
  1. SKELAXIN [Concomitant]
     Dosage: 800 MG, TID
  2. RECLAST [Suspect]
     Indication: OSTEOPOROSIS
     Dosage: 5 MG, ONCE A YEAR
     Route: 042
     Dates: start: 20110203, end: 20110203
  3. ATROVENT [Concomitant]
  4. SIMVASTATIN [Concomitant]
     Dosage: 20 MG, QD
  5. AUGMENTIN '125' [Concomitant]
     Indication: CELLULITIS
     Route: 048
     Dates: start: 20110207, end: 20110217
  6. TYLENOL-500 [Concomitant]

REACTIONS (13)
  - SWELLING FACE [None]
  - BACK PAIN [None]
  - ORAL INFECTION [None]
  - ERYTHEMA [None]
  - INFLUENZA LIKE ILLNESS [None]
  - MYALGIA [None]
  - CELLULITIS [None]
  - FACIAL PAIN [None]
  - SWELLING [None]
  - SINUSITIS [None]
  - PAIN [None]
  - NAUSEA [None]
  - VOMITING [None]
